FAERS Safety Report 12883723 (Version 2)
Quarter: 2016Q4

REPORT INFORMATION
  Report Type: Spontaneous
  Country: US (occurrence: US)
  Receive Date: 20161026
  Receipt Date: 20161031
  Transmission Date: 20170207
  Serious: Yes (Life-Threatening)
  Sender: FDA-Public Use
  Company Number: US-B.I. PHARMACEUTICALS,INC./RIDGEFIELD-2016-BI-070491

PATIENT
  Sex: Male

DRUGS (1)
  1. COMBIVENT [Suspect]
     Active Substance: ALBUTEROL SULFATE\IPRATROPIUM BROMIDE
     Indication: PRODUCT USED FOR UNKNOWN INDICATION
     Dosage: FORM STRENGTH: 20 MCG / 100 MCG; DOSE PER APPLICATION: 20 MCG/100MCG, DAILY DOSE-80MCG/400MCG
     Route: 055
     Dates: start: 2011

REACTIONS (2)
  - Dysarthria [Not Recovered/Not Resolved]
  - Throat cancer [Not Recovered/Not Resolved]
